FAERS Safety Report 8888848 (Version 2)
Quarter: 2012Q4

REPORT INFORMATION
  Report Type: 
  Country: CH (occurrence: CH)
  Receive Date: 20121106
  Receipt Date: 20121114
  Transmission Date: 20130627
  Serious: Yes (Other)
  Sender: FDA-Public Use
  Company Number: PHHY2012CH100347

PATIENT
  Age: 66 Year
  Sex: Male

DRUGS (11)
  1. PRAVASTATINE [Suspect]
     Dosage: 40 mg, daily
     Route: 065
     Dates: start: 20111207
  2. METFIN [Suspect]
     Dosage: 2 g, twice daily
     Route: 065
     Dates: start: 20111210
  3. GALVUS [Suspect]
     Dosage: 50 mg, daily
     Route: 065
     Dates: start: 20111210
  4. DAFALGAN [Suspect]
     Dosage: 4 g, daily
     Route: 048
     Dates: start: 20111207, end: 20111215
  5. NISULID [Suspect]
     Dosage: 100 mg, daily
     Route: 048
     Dates: start: 20111210, end: 20111214
  6. CLEXANE [Suspect]
     Dates: start: 20111206, end: 20111213
  7. TRAMAL [Suspect]
     Dosage: 200 mg, daily
     Dates: start: 20111207
  8. MEPHANOL [Suspect]
     Dosage: 300 mg, daily
     Dates: start: 20111209
  9. NOVALGIN [Concomitant]
     Dosage: 500 mg, QD
     Dates: start: 20111207, end: 20111213
  10. SINTROM [Concomitant]
     Dates: start: 20111211
  11. ALCOHOL [Concomitant]

REACTIONS (2)
  - Cholestatic liver injury [Recovered/Resolved]
  - Non-alcoholic steatohepatitis [Unknown]
